FAERS Safety Report 6556993-X (Version None)
Quarter: 2010Q1

REPORT INFORMATION
  Report Type: 
  Country: None (occurrence: None)
  Receive Date: 20100126
  Receipt Date: 20100113
  Transmission Date: 20100710
  Serious: Yes (Hospitalization)
  Sender: FDA-Public Use
  Company Number: 2009AC000287

PATIENT
  Age: 70 Year
  Sex: Female

DRUGS (43)
  1. DIGOXIN [Suspect]
     Dosage: PO
     Route: 048
     Dates: start: 20071105, end: 20071101
  2. CELEBREX [Concomitant]
  3. LISINOPRIL [Concomitant]
  4. DARVOCET [Concomitant]
  5. LASIX [Concomitant]
  6. PRAVASTATIN [Concomitant]
  7. AMLODIPINE [Concomitant]
  8. ASPIRIN [Concomitant]
  9. HUMULIN R [Concomitant]
  10. SEPTRA [Concomitant]
  11. UNIVASC [Concomitant]
  12. ACCUPRIL [Concomitant]
  13. MECLIZINE [Concomitant]
  14. POTASSIUM CHLORIDE [Concomitant]
  15. TARKA [Concomitant]
  16. CEPHALEXIN [Concomitant]
  17. HYDROCODONE BITARTRATE AND ACETAMINOPHEN [Concomitant]
  18. ERYTHROMYCIN [Concomitant]
  19. ZYMAR [Concomitant]
  20. ACETAMINOPHEN AND CODEINE PHOSPHATE #3 [Concomitant]
  21. UNIRETIC [Concomitant]
  22. SULAR [Concomitant]
  23. LISINOPRIL AND HYDROCHLOROTHIAZIDE [Concomitant]
  24. OMEPRAZOLE [Concomitant]
  25. COLCHICINE [Concomitant]
  26. MELOXICAM [Concomitant]
  27. AMIODARONE HCL [Concomitant]
  28. NORVASC [Concomitant]
  29. PROTONIX [Concomitant]
  30. HYDROCHLOROTHIAZIDE [Concomitant]
  31. NOVOLIN [Concomitant]
  32. ALEVE (CAPLET) [Concomitant]
  33. LOPRESSOR [Concomitant]
  34. NOLVADEX [Concomitant]
  35. LOTENSIN [Concomitant]
  36. ELAVIL [Concomitant]
  37. GUAIFENESIN [Concomitant]
  38. COTRIM [Concomitant]
  39. AMITRIPTYLINE HCL [Concomitant]
  40. CLONIDINE [Concomitant]
  41. LORATADINE [Concomitant]
  42. TRAMADOL HCL [Concomitant]
  43. CEPHALEXIN [Concomitant]

REACTIONS (15)
  - ARTHRALGIA [None]
  - ASTHENIA [None]
  - BRADYCARDIA [None]
  - CARDIOACTIVE DRUG LEVEL INCREASED [None]
  - CHEST PAIN [None]
  - DIABETES MELLITUS [None]
  - DIABETIC NEUROPATHY [None]
  - DYSPNOEA [None]
  - ECONOMIC PROBLEM [None]
  - HYPERTENSION [None]
  - INJURY [None]
  - MYOCARDIAL ISCHAEMIA [None]
  - OEDEMA PERIPHERAL [None]
  - PAIN IN EXTREMITY [None]
  - URINARY TRACT INFECTION [None]
